FAERS Safety Report 5844548-1 (Version None)
Quarter: 2008Q3

REPORT INFORMATION
  Report Type: 
  Country: None (occurrence: None)
  Receive Date: 20080814
  Receipt Date: 20080811
  Transmission Date: 20090109
  Serious: Yes (Hospitalization)
  Sender: FDA-Public Use
  Company Number: PHHO2005IL05058

PATIENT
  Sex: Male
  Weight: 80 kg

DRUGS (1)
  1. PLACEBO PLACEBO [Suspect]
     Indication: DEMENTIA ALZHEIMER'S TYPE
     Dosage: UNK
     Dates: start: 20050131, end: 20050301

REACTIONS (5)
  - DISEASE PROGRESSION [None]
  - DRUG INEFFECTIVE [None]
  - GENERAL PHYSICAL HEALTH DETERIORATION [None]
  - PNEUMONIA [None]
  - PYREXIA [None]
